FAERS Safety Report 10189991 (Version 1)
Quarter: 2014Q2

REPORT INFORMATION
  Report Type: Spontaneous
  Country: US (occurrence: US)
  Receive Date: 20140522
  Receipt Date: 20140522
  Transmission Date: 20141212
  Serious: Yes (Other)
  Sender: FDA-Public Use
  Company Number: US-AMGEN-USASP2014036490

PATIENT
  Age: 59 Year
  Sex: Female
  Weight: 54.42 kg

DRUGS (6)
  1. PROLIA [Suspect]
     Indication: OSTEOPOROSIS POSTMENOPAUSAL
     Route: 065
  2. NEURONTIN [Concomitant]
     Route: 065
  3. KLONOPIN [Concomitant]
     Route: 065
  4. CALCIUM [Concomitant]
     Route: 065
  5. VITAMIN D                          /00107901/ [Concomitant]
     Route: 065
  6. COQ10                              /00517201/ [Concomitant]

REACTIONS (9)
  - Glucose tolerance impaired [Unknown]
  - Depression [Unknown]
  - Pain [Unknown]
  - Vitamin B12 abnormal [Unknown]
  - Pain in extremity [Unknown]
  - Tearfulness [Unknown]
  - Back pain [Unknown]
  - Eating disorder [Unknown]
  - Blood cholesterol increased [Unknown]
